FAERS Safety Report 4719088-3 (Version None)
Quarter: 2005Q3

REPORT INFORMATION
  Report Type: 
  Country: None (occurrence: None)
  Receive Date: 20050720
  Receipt Date: 20050706
  Transmission Date: 20060218
  Serious: Yes (Hospitalization)
  Sender: FDA-Public Use
  Company Number: 2005099151

PATIENT
  Age: 21 Year
  Sex: Female

DRUGS (4)
  1. NEURONTIN [Suspect]
     Indication: ILL-DEFINED DISORDER
     Dosage: 1800 MG (600 MG, 3 IN 1 D),ORAL
     Route: 048
  2. VALPROATE SODIUM [Concomitant]
  3. FLUOXETINE [Concomitant]
  4. ALL OTHER THERAPEUTIC PRODUCTS (ALL OTHER THERAPEUTIC PRODUCTS) [Concomitant]

REACTIONS (1)
  - RESPIRATORY DISTRESS [None]
